FAERS Safety Report 4285478-9 (Version None)
Quarter: 2004Q1

REPORT INFORMATION
  Report Type: 
  Country: None (occurrence: None)
  Receive Date: 20040202
  Receipt Date: 20040122
  Transmission Date: 20041129
  Serious: Yes (Hospitalization)
  Sender: FDA-Public Use
  Company Number: MK200401-0235-1

PATIENT
  Age: 41 Year
  Sex: Female

DRUGS (7)
  1. METHADONE HYDROCHLORIDE [Suspect]
     Indication: PAIN
     Dosage: 660MG, DAILY
  2. GABAPENTIN [Concomitant]
  3. FLUOXETINE [Concomitant]
  4. TRIAMTERENE AND HYDROCHLOROTHIAZIDE [Concomitant]
  5. ESTROGEN [Concomitant]
  6. ZOPICLONE [Concomitant]
  7. FLAVOXATE HYDROCHLORIDE COATED TAB [Concomitant]

REACTIONS (13)
  - CARDIAC ARREST [None]
  - CAROTID PULSE INCREASED [None]
  - DIZZINESS [None]
  - DRUG EFFECT DECREASED [None]
  - ELECTROCARDIOGRAM QT PROLONGED [None]
  - FATIGUE [None]
  - HYPOKALAEMIA [None]
  - PAIN EXACERBATED [None]
  - RESPIRATORY RATE INCREASED [None]
  - SYNCOPE [None]
  - TORSADE DE POINTES [None]
  - VENTRICULAR FIBRILLATION [None]
  - VENTRICULAR TACHYCARDIA [None]
